FAERS Safety Report 9500342 (Version 1)
Quarter: 2013Q3

REPORT INFORMATION
  Report Type: Spontaneous
  Country: MY (occurrence: None)
  Receive Date: 20130903
  Receipt Date: 20130903
  Transmission Date: 20140515
  Serious: Yes (Other)
  Sender: FDA-Public Use
  Company Number: NPIL/SEV/H/2013/58

PATIENT
  Age: 22 Year
  Sex: Male
  Weight: 75 kg

DRUGS (7)
  1. SEVOFLURANE [Suspect]
     Indication: ANAESTHESIA
     Dosage: 1-2%, INHALATION
     Route: 055
  2. SEVOFLURANE [Suspect]
     Indication: SURGERY
     Dosage: 1-2%, INHALATION
     Route: 055
  3. PROPOFOL [Concomitant]
  4. FENTANYL [Concomitant]
  5. ATRACURIUM [Concomitant]
  6. ETOMIDATE [Concomitant]
  7. NITROUS OXIDE WITH OXYGEN INHALATION 50% [Concomitant]

REACTIONS (6)
  - Nodal rhythm [None]
  - Electrocardiogram T wave inversion [None]
  - Electrocardiogram ST segment depression [None]
  - Bundle branch block left [None]
  - Left ventricular hypertrophy [None]
  - Anaesthetic complication [None]
